FAERS Safety Report 24943369 (Version 1)
Quarter: 2025Q1

REPORT INFORMATION
  Report Type: Spontaneous
  Country: US (occurrence: None)
  Receive Date: 20250207
  Receipt Date: 20250207
  Transmission Date: 20250408
  Serious: Yes (Other)
  Sender: FDA-CTU
  Company Number: None

PATIENT
  Age: 63 Year
  Sex: Female
  Weight: 49.5 kg

DRUGS (1)
  1. RECLAST [Suspect]
     Active Substance: ZOLEDRONIC ACID
     Route: 042
     Dates: start: 20250205, end: 20250205

REACTIONS (6)
  - Pain [None]
  - Chills [None]
  - Infusion related reaction [None]
  - Myalgia [None]
  - Fatigue [None]
  - Decreased activity [None]

NARRATIVE: CASE EVENT DATE: 20250205
